FAERS Safety Report 8573490-0 (Version None)
Quarter: 2012Q3

REPORT INFORMATION
  Report Type: 
  Country: None (occurrence: None)
  Receive Date: 20120806
  Receipt Date: 20120730
  Transmission Date: 20120928
  Serious: Yes (Other)
  Sender: FDA-Public Use
  Company Number: US-BAYER-2012-060317

PATIENT
  Sex: Female
  Weight: 86.168 kg

DRUGS (2)
  1. METRO [Concomitant]
     Indication: VAGINAL DISCHARGE
     Dosage: UNK UNK, Q1HR
     Route: 067
     Dates: start: 20120521, end: 20120526
  2. MIRENA [Suspect]
     Indication: CONTRACEPTION
     Dosage: 20 MCG/24HR, CONT
     Route: 015
     Dates: start: 20080129

REACTIONS (6)
  - OVARIAN CYST [None]
  - IRRITABLE BOWEL SYNDROME [None]
  - VAGINAL HAEMORRHAGE [None]
  - DEVICE DISLOCATION [None]
  - AMENORRHOEA [None]
  - ABDOMINAL PAIN LOWER [None]
